FAERS Safety Report 7681159-X (Version None)
Quarter: 2011Q3

REPORT INFORMATION
  Report Type: 
  Country: None (occurrence: None)
  Receive Date: 20110812
  Receipt Date: 20110808
  Transmission Date: 20111222
  Serious: Yes (Death)
  Sender: FDA-Public Use
  Company Number: PH-SANOFI-AVENTIS-2011SA050404

PATIENT
  Age: 74 Year
  Sex: Male

DRUGS (3)
  1. DRONEDARONE HCL [Suspect]
     Indication: ATRIAL FIBRILLATION
     Route: 048
     Dates: start: 20110626
  2. CLOPIDOGREL [Concomitant]
  3. FONDAPARINUX SODIUM [Concomitant]

REACTIONS (1)
  - SUDDEN DEATH [None]
